FAERS Safety Report 7489495-7 (Version None)
Quarter: 2011Q2

REPORT INFORMATION
  Report Type: 
  Country: None (occurrence: None)
  Receive Date: 20110518
  Receipt Date: 20110509
  Transmission Date: 20111010
  Serious: Yes (Other)
  Sender: FDA-Public Use
  Company Number: CA-SANOFI-AVENTIS-2011SA030014

PATIENT
  Age: 78 Year
  Sex: Male

DRUGS (11)
  1. ACETAMINOPHEN [Concomitant]
     Dates: start: 20060101
  2. ATORVASTATIN [Concomitant]
     Dates: start: 20080101
  3. ADALAT [Concomitant]
     Dates: start: 20060101
  4. FUROSEMIDE [Concomitant]
     Dates: start: 20080101
  5. ZOLADEX [Concomitant]
     Dates: start: 20090101
  6. DOCETAXEL [Suspect]
     Indication: PROSTATE CANCER
     Route: 041
     Dates: start: 20110203, end: 20110203
  7. TAMSULOSIN HYDROCHLORIDE [Concomitant]
     Dates: start: 20060101
  8. DOCETAXEL [Suspect]
     Route: 041
     Dates: start: 20110101, end: 20110101
  9. BLINDED THERAPY [Suspect]
     Indication: PROSTATE CANCER
     Route: 048
     Dates: start: 20110203, end: 20110426
  10. ATENOLOL [Concomitant]
     Dates: start: 20060101
  11. CALCIUM CARBONATE [Concomitant]
     Dates: start: 20060101

REACTIONS (1)
  - DILATATION ATRIAL [None]
